FAERS Safety Report 6940758-0 (Version None)
Quarter: 2010Q3

REPORT INFORMATION
  Report Type: 
  Country: None (occurrence: None)
  Receive Date: 20100825
  Receipt Date: 20100817
  Transmission Date: 20110219
  Serious: Yes (Other)
  Sender: FDA-Public Use
  Company Number: DE-ROCHE-722884

PATIENT
  Age: 75 Year
  Sex: Female

DRUGS (2)
  1. AVASTIN [Suspect]
     Route: 065
     Dates: start: 20100401
  2. PACLITAXEL [Concomitant]
     Dates: start: 20100401

REACTIONS (2)
  - NASAL SEPTUM DISORDER [None]
  - SKIN ULCER [None]
